FAERS Safety Report 11840376 (Version 1)
Quarter: 2015Q4

REPORT INFORMATION
  Report Type: Spontaneous
  Country: CH (occurrence: CH)
  Receive Date: 20151216
  Receipt Date: 20151216
  Transmission Date: 20160305
  Serious: Yes (Hospitalization)
  Sender: FDA-Public Use
  Company Number: CH-ASTRAZENECA-2015SF23970

PATIENT
  Age: 66 Year
  Sex: Male

DRUGS (5)
  1. ASPIRIN CARDIO [Suspect]
     Active Substance: ASPIRIN
     Indication: CORONARY ARTERY DISEASE
     Route: 048
  2. TELMISARTAN. [Suspect]
     Active Substance: TELMISARTAN
     Dosage: NON-AZ PRODUCT, 40 MG, EVERY DAY
     Route: 048
  3. DILTIAZEM MEPHA [Suspect]
     Active Substance: DILTIAZEM
     Indication: HYPERTENSION
     Dosage: NON-AZ PRODUCT, 90 MG, EVERY DAY
     Route: 048
  4. CRESTOR [Suspect]
     Active Substance: ROSUVASTATIN CALCIUM
     Indication: HYPERLIPIDAEMIA
     Route: 048
  5. STRUCTUM [Suspect]
     Active Substance: SODIUM CHONDROITIN SULFATE
     Route: 048
     Dates: end: 20151113

REACTIONS (4)
  - Thrombocytopenia [Unknown]
  - Normochromic normocytic anaemia [Unknown]
  - Bone marrow toxicity [Unknown]
  - Bicytopenia [Unknown]

NARRATIVE: CASE EVENT DATE: 201511
